FAERS Safety Report 9641949 (Version 1)
Quarter: 2013Q4

REPORT INFORMATION
  Report Type: Spontaneous
  Country: DE (occurrence: None)
  Receive Date: 20131022
  Receipt Date: 20131022
  Transmission Date: 20140711
  Serious: Yes (Other)
  Sender: FDA-Public Use
  Company Number: 1310-1298

PATIENT
  Age: 73 Year
  Sex: Female

DRUGS (1)
  1. EYLEA [Suspect]

REACTIONS (1)
  - Depression [None]
